FAERS Safety Report 20938485 (Version 4)
Quarter: 2022Q3

REPORT INFORMATION
  Report Type: Spontaneous
  Country: GB (occurrence: None)
  Receive Date: 20220609
  Receipt Date: 20220701
  Transmission Date: 20221026
  Serious: Yes (Death, Other)
  Sender: FDA-Public Use
  Company Number: 2022A205241

PATIENT
  Age: 68 Year
  Sex: Female
  Weight: 71.2 kg

DRUGS (5)
  1. ACALABRUTINIB [Suspect]
     Active Substance: ACALABRUTINIB
     Dosage: UNKNOWN
     Route: 048
  2. RUXOLITINIB [Suspect]
     Active Substance: RUXOLITINIB
     Indication: Polycythaemia vera
     Route: 048
     Dates: start: 20170707, end: 20220328
  3. LEVOTHYROXINE [Concomitant]
     Active Substance: LEVOTHYROXINE
     Indication: Hypothyroidism
     Route: 065
  4. FLUOXETINE [Concomitant]
     Active Substance: FLUOXETINE HYDROCHLORIDE
     Indication: Depression
     Route: 065
  5. TAMOXIFEN [Concomitant]
     Active Substance: TAMOXIFEN

REACTIONS (4)
  - Ovarian cancer metastatic [Fatal]
  - Intestinal obstruction [Fatal]
  - Blood phosphorus decreased [Recovered/Resolved]
  - Neutropenia [Unknown]

NARRATIVE: CASE EVENT DATE: 20210319
